FAERS Safety Report 24026393 (Version 1)
Quarter: 2024Q2

REPORT INFORMATION
  Report Type: Report from Study
  Country: DK (occurrence: DK)
  Receive Date: 20240628
  Receipt Date: 20240628
  Transmission Date: 20240716
  Serious: No
  Sender: FDA-Public Use
  Company Number: DK-ROCHE-3561363

PATIENT
  Age: 49 Year
  Sex: Female

DRUGS (2)
  1. PHESGO [Suspect]
     Active Substance: HYALURONIDASE-ZZXF\PERTUZUMAB\TRASTUZUMAB
     Indication: Breast cancer
     Dosage: DOSE: PERTUZUMAB/TRASTUZUMAB 600/600 MG
     Route: 058
     Dates: start: 20220921
  2. PREDNISOLONE [Concomitant]
     Active Substance: PREDNISOLONE
     Route: 048

REACTIONS (1)
  - Disease progression [Not Recovered/Not Resolved]

NARRATIVE: CASE EVENT DATE: 20240416
